FAERS Safety Report 19291793 (Version 1)
Quarter: 2021Q2

REPORT INFORMATION
  Report Type: Spontaneous
  Country: ZA (occurrence: ZA)
  Receive Date: 20210524
  Receipt Date: 20210524
  Transmission Date: 20210717
  Serious: Yes (Other)
  Sender: FDA-Public Use
  Company Number: ZA-ROCHE-2834788

PATIENT
  Age: 43 Year
  Sex: Male

DRUGS (2)
  1. XOLAIR [Suspect]
     Active Substance: OMALIZUMAB
     Indication: URTICARIA
  2. XOLAIR [Suspect]
     Active Substance: OMALIZUMAB
     Indication: ANGIOEDEMA
     Route: 058
     Dates: start: 20201013

REACTIONS (1)
  - Epilepsy [Unknown]
